FAERS Safety Report 7308772-3 (Version None)
Quarter: 2011Q1

REPORT INFORMATION
  Report Type: 
  Country: None (occurrence: None)
  Receive Date: 20110223
  Receipt Date: 20110214
  Transmission Date: 20110831
  Serious: Yes (Hospitalization)
  Sender: FDA-Public Use
  Company Number: PHHO2011FR01868

PATIENT
  Sex: Female
  Weight: 58 kg

DRUGS (4)
  1. SOLU-MEDROL [Concomitant]
     Indication: RENAL TRANSPLANT
     Dosage: 500 MG, ONCE/SINGLE
     Route: 042
     Dates: start: 20110111, end: 20110111
  2. NEORAL [Suspect]
     Indication: RENAL TRANSPLANT
     Dosage: 250 MG, BID
     Route: 048
     Dates: start: 20110112
  3. SIMULECT [Concomitant]
     Indication: RENAL TRANSPLANT
     Dosage: 20 MG, ONCE/SINGLE
     Route: 042
     Dates: start: 20110111, end: 20110111
  4. SOLU-MEDROL [Concomitant]
     Dosage: 250 MG, ONCE/SINGLE
     Route: 042
     Dates: start: 20110112, end: 20110112

REACTIONS (4)
  - VASOCONSTRICTION [None]
  - OLIGURIA [None]
  - ACCIDENTAL OVERDOSE [None]
  - COMPLICATIONS OF TRANSPLANTED KIDNEY [None]
